FAERS Safety Report 19715867 (Version 1)
Quarter: 2021Q3

REPORT INFORMATION
  Report Type: Report from Study
  Country: GB (occurrence: GB)
  Receive Date: 20210818
  Receipt Date: 20210818
  Transmission Date: 20211014
  Serious: Yes (Other)
  Sender: FDA-Public Use
  Company Number: GB-ELI_LILLY_AND_COMPANY-GB202108005185

PATIENT

DRUGS (5)
  1. PEMETREXED. [Suspect]
     Active Substance: PEMETREXED
     Indication: PLEURAL MESOTHELIOMA
     Dosage: 500 MG/M2, CYCLICAL
     Route: 065
  2. GANETESPIB [Suspect]
     Active Substance: GANETESPIB
     Dosage: 150 MG/M2, CYCLICAL
     Route: 065
  3. GANETESPIB [Suspect]
     Active Substance: GANETESPIB
     Dosage: 200 MG/M2, CYCLICAL
     Route: 065
  4. CISPLATIN. [Suspect]
     Active Substance: CISPLATIN
     Indication: PLEURAL MESOTHELIOMA
     Dosage: 75 MG/M2, CYCLICAL
     Route: 065
  5. GANETESPIB [Suspect]
     Active Substance: GANETESPIB
     Indication: PLEURAL MESOTHELIOMA
     Dosage: 100 MG/M2, CYCLICAL
     Route: 065

REACTIONS (1)
  - Hypoacusis [Unknown]
